FAERS Safety Report 4461145-3 (Version None)
Quarter: 2004Q3

REPORT INFORMATION
  Report Type: 
  Country: None (occurrence: None)
  Receive Date: 20040920
  Receipt Date: 20040920
  Transmission Date: 20050211
  Serious: Yes (Hospitalization)
  Sender: FDA-Public Use
  Company Number: None

PATIENT
  Age: 49 Year
  Sex: Female
  Weight: 62.8 kg

DRUGS (2)
  1. DAUNORUBICIN HCL [Suspect]
     Indication: ACUTE MYELOID LEUKAEMIA
     Dosage: 144MG DAILY X 3 INTRAVENOUS
     Route: 042
     Dates: start: 20040814, end: 20040816
  2. CYTARABINE [Suspect]
     Dosage: 160MG DAILY X INTRAVENOUS
     Route: 042
     Dates: start: 30050925, end: 30050930

REACTIONS (11)
  - ABDOMINAL PAIN [None]
  - CLOSTRIDIUM COLITIS [None]
  - DIARRHOEA [None]
  - HAEMODIALYSIS [None]
  - HYPOTENSION [None]
  - LUNG INFILTRATION [None]
  - NEUTROPENIA [None]
  - PANCREATITIS [None]
  - PULMONARY OEDEMA [None]
  - PYREXIA [None]
  - RENAL FAILURE ACUTE [None]
